FAERS Safety Report 5316923-5 (Version None)
Quarter: 2007Q2

REPORT INFORMATION
  Report Type: 
  Country: None (occurrence: None)
  Receive Date: 20070501
  Receipt Date: 20070501
  Transmission Date: 20071010
  Serious: Yes (Hospitalization)
  Sender: FDA-Public Use
  Company Number: None

PATIENT
  Age: 63 Year
  Sex: Male
  Weight: 78.9259 kg

DRUGS (2)
  1. AMOXICILLIN + CLAVULANATE POTASSIUM [Suspect]
     Dosage: 1 TAB  Q12HRS   PO
     Route: 048
     Dates: start: 20070420, end: 20070426
  2. CIPRO [Suspect]
     Indication: URINARY TRACT INFECTION
     Dosage: 250 MG  Q 12 HRS  PO
     Route: 048
     Dates: start: 20070417, end: 20070420

REACTIONS (3)
  - CLOSTRIDIAL INFECTION [None]
  - DIARRHOEA [None]
  - MENTAL STATUS CHANGES [None]
